FAERS Safety Report 18143065 (Version 1)
Quarter: 2020Q3

REPORT INFORMATION
  Report Type: Spontaneous
  Country: US (occurrence: US)
  Receive Date: 20200812
  Receipt Date: 20200812
  Transmission Date: 20201103
  Serious: Yes (Hospitalization)
  Sender: FDA-Public Use
  Company Number: US-B.I. PHARMACEUTICALS,INC./RIDGEFIELD-2020-BI-040558

PATIENT
  Sex: Male
  Weight: 103.4 kg

DRUGS (23)
  1. JANUVIA [Concomitant]
     Active Substance: SITAGLIPTIN PHOSPHATE
     Indication: PRODUCT USED FOR UNKNOWN INDICATION
     Route: 065
     Dates: start: 20191012
  2. BRILINTA [Concomitant]
     Active Substance: TICAGRELOR
     Indication: PRODUCT USED FOR UNKNOWN INDICATION
     Dosage: TAKE 90 MG BY MOUTH 2 (TWO) TIMES A DAY
     Route: 048
     Dates: start: 20190904
  3. GLYXAMBI [Suspect]
     Active Substance: EMPAGLIFLOZIN\LINAGLIPTIN
     Indication: PRODUCT USED FOR UNKNOWN INDICATION
     Dosage: 25/5MG
     Route: 048
     Dates: start: 20190805
  4. ROXICODONE [Concomitant]
     Active Substance: OXYCODONE HYDROCHLORIDE
     Indication: PAIN
     Dosage: 1 TABLET (10 MG TOTAL) BY MOUTH EVERY 6 (SIX) HOURS AS NEEDED FOR
     Route: 048
     Dates: start: 20191012
  5. GLUCOPHAGE [Concomitant]
     Active Substance: METFORMIN HYDROCHLORIDE
     Indication: PRODUCT USED FOR UNKNOWN INDICATION
     Dosage: TAKE 1,500 MG BY MOUTH 2 (TWO) TIMES A DAY
     Route: 048
     Dates: start: 20190816
  6. TRADJENTA [Concomitant]
     Active Substance: LINAGLIPTIN
     Indication: PRODUCT USED FOR UNKNOWN INDICATION
     Dosage: 1 TABLET (5 MG TOTAL) BY MOUTH DAILY
     Route: 048
     Dates: start: 20191013
  7. LASIX [Concomitant]
     Active Substance: FUROSEMIDE
     Indication: PRODUCT USED FOR UNKNOWN INDICATION
     Route: 048
     Dates: start: 20190822
  8. COLACE [Concomitant]
     Active Substance: DOCUSATE SODIUM
     Route: 048
  9. FOLVITE [FOLIC ACID] [Concomitant]
     Indication: PRODUCT USED FOR UNKNOWN INDICATION
     Dosage: TAKE 1,000 MCG BY MOUTH DAILY
     Route: 048
     Dates: start: 20190930
  10. LISINOPRIL. [Concomitant]
     Active Substance: LISINOPRIL
     Indication: PRODUCT USED FOR UNKNOWN INDICATION
     Dosage: TAKE 2.5 MG BY MOUTH DAILY
     Route: 048
     Dates: start: 20190814
  11. METHOTREXATE. [Concomitant]
     Active Substance: METHOTREXATE
     Indication: PRODUCT USED FOR UNKNOWN INDICATION
     Dosage: TAKE 5 TABLETS BY MOUTH ONCE A VVEEK ON SATURDAYS
     Route: 048
     Dates: start: 20190930
  12. PRILOSEC [Concomitant]
     Active Substance: OMEPRAZOLE MAGNESIUM
     Indication: PRODUCT USED FOR UNKNOWN INDICATION
     Dosage: TAKE 20 MG BY MOUTH 2 (TWO) TIMES A DAY
     Route: 048
     Dates: start: 20190717
  13. ALDACTONE [Concomitant]
     Active Substance: SPIRONOLACTONE
     Indication: PRODUCT USED FOR UNKNOWN INDICATION
     Dosage: TAKE 12.5 MG BY MOUTH DAILY
     Route: 048
     Dates: start: 20190822
  14. COLACE [Concomitant]
     Active Substance: DOCUSATE SODIUM
     Indication: PRODUCT USED FOR UNKNOWN INDICATION
     Dosage: 100 MG BY MOUTH 2 (1.WO) TIMES A DAY
     Route: 048
  15. ASPIRIN [ACETYLSALICYLIC ACID] [Concomitant]
     Active Substance: ASPIRIN
     Indication: PRODUCT USED FOR UNKNOWN INDICATION
     Dosage: TAKE 81 MG BY MOUTH DAILY
     Route: 048
     Dates: start: 20190207
  16. GLUCOTROL XL [Concomitant]
     Active Substance: GLIPIZIDE
     Indication: PRODUCT USED FOR UNKNOWN INDICATION
     Dosage: TAKE 10 MG BY MOUTH 2 (TWO) TIMES A DAY
     Route: 048
     Dates: start: 20190916
  17. XTAMPZA ER [Concomitant]
     Active Substance: OXYCODONE
     Indication: PRODUCT USED FOR UNKNOWN INDICATION
     Dosage: TAKE 2 CAPSULES BY MOUTH 2 (TVVO) TIMES A DAY,  SPRINKLE, ER 12HR TMPRR
     Route: 048
     Dates: start: 20191007
  18. DESYREL [Concomitant]
     Active Substance: TRAZODONE HYDROCHLORIDE
     Indication: PRODUCT USED FOR UNKNOWN INDICATION
     Dosage: TAKE 1 TABLET BY MOUTH NIGHTLY
     Route: 048
     Dates: start: 20190822
  19. LIPITOR [Concomitant]
     Active Substance: ATORVASTATIN CALCIUM
     Indication: PRODUCT USED FOR UNKNOWN INDICATION
     Dosage: TAKE 80 MG BY MOUTH NIGHTLY
     Route: 048
     Dates: start: 20190930
  20. BUSPAR [Concomitant]
     Active Substance: BUSPIRONE HYDROCHLORIDE
     Indication: PRODUCT USED FOR UNKNOWN INDICATION
     Dosage: TAKE 15 MG BY MOUTH 2 (TWO) TIMES A DAY
     Route: 048
     Dates: start: 20190826
  21. COREG [Concomitant]
     Active Substance: CARVEDILOL
     Indication: PRODUCT USED FOR UNKNOWN INDICATION
     Dosage: TAKE 25 MG BY MOUTH 2 (TWO) TIMES A DAY VVITH MEALS
     Route: 048
     Dates: start: 20190822
  22. PERCOCET [Concomitant]
     Active Substance: ACETAMINOPHEN\OXYCODONE HYDROCHLORIDE
     Indication: PAIN
     Dosage: STRENGTH ? 10?325 MG PER TABLET,  1 TABLET BY MOUTH 4 (FOUR) TIMES A DAY AS NEEDED
     Route: 048
     Dates: start: 20191007
  23. LANTUS [Concomitant]
     Active Substance: INSULIN GLARGINE
     Indication: PRODUCT USED FOR UNKNOWN INDICATION
     Dosage: STRENGTH ?100UNITS/ML,  INJECT 30 UNITS UNDER THE SKIN NIGHTLY
     Route: 065
     Dates: start: 20191012

REACTIONS (1)
  - Fournier^s gangrene [Unknown]
